FAERS Safety Report 25271892 (Version 1)
Quarter: 2025Q2

REPORT INFORMATION
  Report Type: Spontaneous
  Country: IN (occurrence: IN)
  Receive Date: 20250506
  Receipt Date: 20250506
  Transmission Date: 20250716
  Serious: Yes (Congenital Anomaly)
  Sender: STRIDES
  Company Number: IN-STRIDES ARCOLAB LIMITED-2025SP005270

PATIENT

DRUGS (1)
  1. GLYBURIDE [Suspect]
     Active Substance: GLYBURIDE
     Indication: Product used for unknown indication
     Route: 064

REACTIONS (2)
  - Spina bifida occulta [Unknown]
  - Foetal exposure during pregnancy [Unknown]
